FAERS Safety Report 9349903 (Version 1)
Quarter: 2013Q2

REPORT INFORMATION
  Report Type: Spontaneous
  Country: NL (occurrence: NL)
  Receive Date: 20130614
  Receipt Date: 20130614
  Transmission Date: 20140414
  Serious: Yes (Other)
  Sender: FDA-Public Use
  Company Number: PHHY2013NL059562

PATIENT
  Age: 2 Year
  Sex: Male

DRUGS (5)
  1. VORICONAZOLE [Suspect]
     Indication: ANTIFUNGAL PROPHYLAXIS
  2. METHOTREXATE [Interacting]
     Dosage: 3000-5000 MG/M2
  3. MITOXANTRONE [Concomitant]
  4. CYTARABINE [Concomitant]
  5. COTRIMOXAZOLE [Concomitant]
     Route: 048

REACTIONS (4)
  - Photosensitivity reaction [Recovered/Resolved]
  - Erythema [Recovered/Resolved]
  - Cheilitis [Recovered/Resolved]
  - Drug interaction [Unknown]
